FAERS Safety Report 4830127-1 (Version None)
Quarter: 2005Q4

REPORT INFORMATION
  Report Type: 
  Country: None (occurrence: None)
  Receive Date: 20051114
  Receipt Date: 20051102
  Transmission Date: 20060501
  Serious: Yes (Hospitalization)
  Sender: FDA-Public Use
  Company Number: DE_051117424

PATIENT
  Age: 23 Year
  Sex: Male
  Weight: 67 kg

DRUGS (2)
  1. ZYPREXA [Suspect]
     Indication: SCHIZOAFFECTIVE DISORDER
     Dosage: 5 MG DAY
     Dates: start: 20050427, end: 20050509
  2. PAROXETINE HCL [Concomitant]

REACTIONS (9)
  - AGITATION [None]
  - ALANINE AMINOTRANSFERASE INCREASED [None]
  - ASPARTATE AMINOTRANSFERASE INCREASED [None]
  - BLOOD AMYLASE INCREASED [None]
  - BLOOD LACTATE DEHYDROGENASE INCREASED [None]
  - FATIGUE [None]
  - LIPASE INCREASED [None]
  - NAUSEA [None]
  - SEDATION [None]
